FAERS Safety Report 5645076-9 (Version None)
Quarter: 2008Q1

REPORT INFORMATION
  Report Type: 
  Country: None (occurrence: None)
  Receive Date: 20080229
  Receipt Date: 20080220
  Transmission Date: 20080703
  Serious: Yes (Other)
  Sender: FDA-Public Use
  Company Number: JP-AVENTIS-200810349JP

PATIENT
  Sex: Female

DRUGS (2)
  1. OPTICLIK (INSULIN INJECTION PEN) [Suspect]
  2. LANTUS [Suspect]
     Route: 058

REACTIONS (2)
  - DEVICE MALFUNCTION [None]
  - NO ADVERSE EVENT [None]
